FAERS Safety Report 9005796 (Version 1)
Quarter: 2013Q1

REPORT INFORMATION
  Report Type: Spontaneous
  Country: US (occurrence: US)
  Receive Date: 20130109
  Receipt Date: 20130109
  Transmission Date: 20140127
  Serious: No
  Sender: FDA-Public Use
  Company Number: US-ABBOTT-12P-163-0916423-00

PATIENT
  Sex: Female
  Weight: 61.29 kg

DRUGS (8)
  1. VICODIN [Suspect]
     Indication: PRODUCT USED FOR UNKNOWN INDICATION
  2. COREG [Concomitant]
     Dosage: ONE IN MORNING, TWO AT NIGHT = 18.75 MG
  3. LISINOPRIL [Concomitant]
     Indication: PRODUCT USED FOR UNKNOWN INDICATION
  4. DIGOXIN [Concomitant]
     Indication: PRODUCT USED FOR UNKNOWN INDICATION
  5. AMBIEN [Concomitant]
     Indication: PRODUCT USED FOR UNKNOWN INDICATION
     Dosage: OCCASIONALLY
  6. MULTIVITAMINS [Concomitant]
     Indication: PRODUCT USED FOR UNKNOWN INDICATION
  7. CALCIUM + VITAMIN D [Concomitant]
     Indication: PRODUCT USED FOR UNKNOWN INDICATION
  8. ALEVE [Concomitant]
     Indication: PRODUCT USED FOR UNKNOWN INDICATION
     Dosage: OCCASIONALLY

REACTIONS (1)
  - Hypersensitivity [Unknown]
